FAERS Safety Report 16200094 (Version 1)
Quarter: 2019Q2

REPORT INFORMATION
  Report Type: Other
  Country: GB (occurrence: GB)
  Receive Date: 20190415
  Receipt Date: 20190415
  Transmission Date: 20190711
  Serious: Yes (Other)
  Sender: FDA-Public Use
  Company Number: GB-CELLTRION INC.-2019GB020252

PATIENT

DRUGS (11)
  1. SODIUM CHLORIDE INTRAVENOUS INFUSION BP 0.9% W/V [Suspect]
     Active Substance: SODIUM CHLORIDE
     Indication: MEDICATION DILUTION
     Dosage: 1 DOSE EVERY 3 WEEKS (WITH PERTUZUMAB); SOLUTION FOR INFUSION
     Route: 042
     Dates: start: 20181011
  2. WATER FOR INJECTION [Suspect]
     Active Substance: WATER
     Indication: MEDICATION DILUTION
     Dosage: 1 EVERY 3 WEEKS; SOLVENT FOR PARENTERAL USE
     Route: 042
     Dates: start: 20181011
  3. TRASTUZUMAB (UNKNOWN) [Suspect]
     Active Substance: TRASTUZUMAB
     Indication: BREAST CANCER
     Dosage: 425 MG EVERY 3 WEEKS
     Route: 042
     Dates: start: 20181011
  4. LOPERAMIDE [Suspect]
     Active Substance: LOPERAMIDE
     Indication: DIARRHOEA
     Dosage: 2 MG, ONE AS NECESSARY
     Route: 048
  5. PERTUZUMAB. [Suspect]
     Active Substance: PERTUZUMAB
     Indication: BREAST CANCER
     Dosage: 420 MG EVERY 3 WEEKS
     Route: 042
     Dates: start: 20181011
  6. SODIUM CHLORIDE INTRAVENOUS INFUSION BP 0.9% W/V [Suspect]
     Active Substance: SODIUM CHLORIDE
     Dosage: 1 EVERY 3 WEEKS (WITH TRASTUZUMAB); SOLUTION FOR INFUSION
     Route: 042
     Dates: start: 20181011
  7. DOCETAXEL. [Suspect]
     Active Substance: DOCETAXEL
     Indication: BREAST CANCER
     Dosage: PREVIOUS CYCLE
     Route: 065
  8. SODIUM CHLORIDE INTRAVENOUS INFUSION BP 0.9% W/V [Suspect]
     Active Substance: SODIUM CHLORIDE
     Dosage: 1 EVERY 1 WEEK, WITH DOCETAXEL HOSPIRA; SOLUTION FOR INFUSION
     Route: 042
     Dates: start: 20181011
  9. COLESTIPOL [Suspect]
     Active Substance: COLESTIPOL
     Indication: DIARRHOEA
     Dosage: 2 PER DAY, SACHETS
     Route: 065
     Dates: start: 20181011
  10. MAGNASPARTATE [Concomitant]
     Indication: BLOOD MAGNESIUM DECREASED
     Dosage: 2 SACHETS, QD
     Route: 048
     Dates: start: 20181006, end: 20181010
  11. DOCETAXEL. [Suspect]
     Active Substance: DOCETAXEL
     Dosage: 63 MG EVERY WEEK, DOSE REDUCED THAN PREVIOUS CYCLE
     Route: 042
     Dates: start: 20181011

REACTIONS (3)
  - Malaise [Recovered/Resolved]
  - Blood magnesium decreased [Recovered/Resolved]
  - Body temperature decreased [Recovered/Resolved]

NARRATIVE: CASE EVENT DATE: 20181031
